FAERS Safety Report 6320184-8 (Version None)
Quarter: 2009Q3

REPORT INFORMATION
  Report Type: 
  Country: None (occurrence: None)
  Receive Date: 20090822
  Receipt Date: 20081022
  Transmission Date: 20100115
  Serious: No
  Sender: FDA-Public Use
  Company Number: US-ABBOTT-08P-163-0483812-00

PATIENT
  Sex: Male

DRUGS (4)
  1. NIASPAN [Suspect]
     Indication: BLOOD CHOLESTEROL INCREASED
     Dosage: E500 MG EVERY NIGHT
  2. DIAVON/HCTZ [Concomitant]
     Indication: DRUG USE FOR UNKNOWN INDICATION
     Dosage: 160 MG/12.5 MG
  3. PAROXETINE HCL [Concomitant]
     Indication: STRESS
  4. GENERIC MOBIC [Concomitant]
     Indication: DRUG USE FOR UNKNOWN INDICATION

REACTIONS (1)
  - FLUSHING [None]
